FAERS Safety Report 14558593 (Version 1)
Quarter: 2018Q1

REPORT INFORMATION
  Report Type: Spontaneous
  Country: US (occurrence: US)
  Receive Date: 20180221
  Receipt Date: 20180221
  Transmission Date: 20180509
  Serious: No
  Sender: FDA-Public Use
  Company Number: US-009507513-1802USA002192

PATIENT
  Age: 44 Year
  Sex: Female
  Weight: 74.38 kg

DRUGS (1)
  1. NEXPLANON [Suspect]
     Active Substance: ETONOGESTREL
     Indication: CONTRACEPTION
     Dosage: IMPLANT, EVERY 5 YEARS, LEFT ARM
     Route: 059
     Dates: start: 20161228

REACTIONS (3)
  - Circumstance or information capable of leading to medication error [Unknown]
  - Menstruation irregular [Unknown]
  - Inappropriate schedule of drug administration [Unknown]

NARRATIVE: CASE EVENT DATE: 20161228
